FAERS Safety Report 5876059-1 (Version None)
Quarter: 2008Q3

REPORT INFORMATION
  Report Type: 
  Country: None (occurrence: None)
  Receive Date: 20080910
  Receipt Date: 20080830
  Transmission Date: 20090109
  Serious: No
  Sender: FDA-Public Use
  Company Number: US-ROCHE-584477

PATIENT
  Sex: Female

DRUGS (2)
  1. ISOTRETINOIN [Suspect]
     Indication: DRUG USE FOR UNKNOWN INDICATION
     Dosage: THE PATIENT WAS DISPENSED ACCUTANE 40 MG CAPSULE ON 13 JUNE 2008 AND 1 AUGUST 2008
     Route: 065
  2. ORAL CONTRACEPTION [Concomitant]

REACTIONS (2)
  - NO ADVERSE EVENT [None]
  - PREGNANCY [None]
